FAERS Safety Report 25667907 (Version 4)
Quarter: 2025Q3

REPORT INFORMATION
  Report Type: Spontaneous
  Country: US (occurrence: US)
  Receive Date: 20250812
  Receipt Date: 20250916
  Transmission Date: 20251020
  Serious: No
  Sender: CSL BEHRING
  Company Number: US-BEH-2025215055

PATIENT
  Age: 29 Year
  Sex: Female

DRUGS (12)
  1. HIZENTRA [Suspect]
     Active Substance: HUMAN IMMUNOGLOBULIN G
     Indication: Stiff person syndrome
     Dosage: 10G/50ML, QW
     Route: 058
     Dates: start: 20250719
  2. HIZENTRA [Suspect]
     Active Substance: HUMAN IMMUNOGLOBULIN G
     Dosage: 21 G, QW
     Route: 058
  3. HIZENTRA [Suspect]
     Active Substance: HUMAN IMMUNOGLOBULIN G
     Dosage: 21 G, QW
     Route: 058
  4. HIZENTRA [Suspect]
     Active Substance: HUMAN IMMUNOGLOBULIN G
     Dosage: 10G5ML: TRANSFER 105ML INTO THREE 50ML SYRINGES, INFUSE 105ML (21G)
     Route: 058
     Dates: start: 20250719
  5. HIZENTRA [Suspect]
     Active Substance: HUMAN IMMUNOGLOBULIN G
     Route: 065
     Dates: start: 20250830, end: 20250830
  6. ACETAMINOPHEN [Concomitant]
     Active Substance: ACETAMINOPHEN
  7. BACLOFEN [Concomitant]
     Active Substance: BACLOFEN
  8. CETIRIZINE HYDROCHLORIDE [Concomitant]
     Active Substance: CETIRIZINE HYDROCHLORIDE
  9. DIAZEPAM [Concomitant]
     Active Substance: DIAZEPAM
  10. DIPHENHYDRAMINE [Concomitant]
     Active Substance: DIPHENHYDRAMINE
  11. EPINEPHRINE [Concomitant]
     Active Substance: EPINEPHRINE
  12. VITAMINS [Concomitant]
     Active Substance: VITAMINS

REACTIONS (8)
  - Drug ineffective for unapproved indication [Unknown]
  - Infusion site reaction [Recovered/Resolved]
  - Infusion site pruritus [Recovered/Resolved]
  - Infusion site erythema [Unknown]
  - Infusion site pruritus [Unknown]
  - Off label use [Unknown]
  - Pain in extremity [Unknown]
  - Rash pruritic [Recovered/Resolved]

NARRATIVE: CASE EVENT DATE: 20250719
